FAERS Safety Report 5070943-7 (Version None)
Quarter: 2006Q3

REPORT INFORMATION
  Report Type: 
  Country: None (occurrence: None)
  Receive Date: 20060801
  Receipt Date: 20060801
  Transmission Date: 20061208
  Serious: Yes (Hospitalization)
  Sender: FDA-Public Use
  Company Number: None

PATIENT
  Age: 57 Year
  Sex: Female
  Weight: 105.5 kg

DRUGS (2)
  1. LISINOPRIL [Suspect]
     Indication: DIABETIC NEPHROPATHY
     Dosage: 20 MG DAILY PO
     Route: 048
  2. LISINOPRIL [Suspect]
     Indication: PROPHYLAXIS
     Dosage: 20 MG DAILY PO
     Route: 048

REACTIONS (9)
  - ABDOMINAL DISTENSION [None]
  - ADRENAL DISORDER [None]
  - ANGIONEUROTIC OEDEMA [None]
  - HAEMANGIOMA [None]
  - HEPATIC NEOPLASM [None]
  - LOSS OF CONSCIOUSNESS [None]
  - NODULE [None]
  - RESPIRATORY ACIDOSIS [None]
  - SWELLING FACE [None]
